FAERS Safety Report 9592413 (Version 2)
Quarter: 2013Q4

REPORT INFORMATION
  Report Type: Spontaneous
  Country: US (occurrence: US)
  Receive Date: 20131004
  Receipt Date: 20131025
  Transmission Date: 20140711
  Serious: Yes (Other)
  Sender: FDA-Public Use
  Company Number: US-009507513-1310USA000802

PATIENT
  Age: 62 Year
  Sex: Male

DRUGS (2)
  1. NANDROLONE DECANOATE [Suspect]
     Indication: MUSCLE BUILDING THERAPY
     Dosage: 400-800 MG, QW
     Route: 030
  2. METHANDROSTENOLONE [Suspect]
     Indication: MUSCLE BUILDING THERAPY
     Dosage: 20-40 MG, QW
     Route: 030

REACTIONS (3)
  - Cardiac failure congestive [Recovered/Resolved]
  - Cardiotoxicity [Recovered/Resolved]
  - Drug administration error [Unknown]
